FAERS Safety Report 8810853 (Version 1)
Quarter: 2012Q4

REPORT INFORMATION
  Report Type: 
  Country: US (occurrence: US)
  Receive Date: 20120927
  Receipt Date: 20120927
  Transmission Date: 20130627
  Serious: No
  Sender: FDA-Public Use
  Company Number: US-MYLANLABS-2012S1007749

PATIENT
  Age: 79 Year
  Sex: Female
  Weight: 52.16 kg

DRUGS (2)
  1. ALENDRONATE SODIUM [Suspect]
     Indication: OSTEOPOROSIS PROPHYLAXIS
     Route: 048
     Dates: start: 20111031, end: 20111114
  2. FEMARA [Concomitant]
     Indication: BREAST CANCER
     Dates: start: 200910

REACTIONS (1)
  - Bone pain [Recovered/Resolved]
